FAERS Safety Report 8600146-8 (Version None)
Quarter: 2012Q3

REPORT INFORMATION
  Report Type: 
  Country: None (occurrence: None)
  Receive Date: 20120817
  Receipt Date: 20120807
  Transmission Date: 20120928
  Serious: Yes (Hospitalization, Other)
  Sender: FDA-Public Use
  Company Number: DE-AMGEN-DEUSP2012047962

PATIENT
  Age: 35 Year
  Sex: Female

DRUGS (9)
  1. AMITRIPTYLINE HCL [Concomitant]
     Dosage: 10 MG, UNK
  2. ENBREL [Suspect]
     Indication: RHEUMATOID ARTHRITIS
     Dosage: 50 MG, UNK
     Dates: start: 20091001
  3. ENBREL [Suspect]
     Dosage: 25 MG, UNK
  4. ACETAMINOPHEN [Concomitant]
     Dosage: UNK
  5. NOVAMINSULFON LICHTENSTEIN [Concomitant]
     Dosage: 500 MG, UNK
  6. ENBREL [Suspect]
     Dosage: 25 MG, UNK (THEN PAUSED FOR 1 YEAR)
  7. ENBREL [Suspect]
     Dosage: 50 MG, WEEKLY
     Route: 058
     Dates: start: 20111101, end: 20120701
  8. NOVALGIN [Concomitant]
     Dosage: DROPS
  9. EMBOLEX [Concomitant]
     Dosage: 300 IU, 1X/DAY
     Route: 058

REACTIONS (1)
  - BREAST CANCER [None]
